FAERS Safety Report 16119783 (Version 1)
Quarter: 2019Q1

REPORT INFORMATION
  Report Type: Spontaneous
  Country: JP (occurrence: JP)
  Receive Date: 20190326
  Receipt Date: 20190326
  Transmission Date: 20190418
  Serious: Yes (Life-Threatening, Other)
  Sender: FDA-Public Use
  Company Number: JP-009507513-1903JPN010677

PATIENT
  Age: 51 Year
  Sex: Female
  Weight: 62 kg

DRUGS (11)
  1. FOSAPREPITANT DIMEGLUMINE. [Suspect]
     Active Substance: FOSAPREPITANT DIMEGLUMINE
     Indication: PROPHYLAXIS OF NAUSEA AND VOMITING
     Dosage: 150 MILLIGRAM, QD
     Route: 042
     Dates: start: 20180418, end: 20180904
  2. ABRAXANE [Suspect]
     Active Substance: PACLITAXEL
     Dosage: 150 MILLIGRAM, QD
     Route: 041
     Dates: start: 20180314, end: 20180904
  3. GEMCITABINE [Suspect]
     Active Substance: GEMCITABINE\GEMCITABINE HYDROCHLORIDE
     Dosage: 1200 MILLIGRAM, QD
     Route: 041
     Dates: start: 20180314, end: 20180904
  4. METOCLOPRAMIDE. [Concomitant]
     Active Substance: METOCLOPRAMIDE
     Indication: PROPHYLAXIS OF NAUSEA AND VOMITING
     Dosage: UNK
     Route: 048
     Dates: start: 20180215, end: 20180904
  5. NEXIUM [Concomitant]
     Active Substance: ESOMEPRAZOLE MAGNESIUM
     Indication: PROPHYLAXIS
     Dosage: 20 MILLIGRAM, QD
     Route: 048
     Dates: start: 20180214, end: 20180904
  6. LOXOPROFEN SODIUM [Concomitant]
     Active Substance: LOXOPROFEN SODIUM
     Indication: PAIN
  7. FUROSEMIDE. [Concomitant]
     Active Substance: FUROSEMIDE
     Dosage: 40 MILLIGRAM
     Route: 048
     Dates: start: 20180516, end: 20180829
  8. ALOXI [Suspect]
     Active Substance: PALONOSETRON HYDROCHLORIDE
     Indication: PROPHYLAXIS OF NAUSEA AND VOMITING
     Dosage: 0.75 MILLIGRAM, IV DRIP
     Route: 041
     Dates: start: 20180214, end: 20180904
  9. GEMCITABINE [Suspect]
     Active Substance: GEMCITABINE\GEMCITABINE HYDROCHLORIDE
     Indication: PANCREATIC CARCINOMA
     Dosage: 1500 MILLIGRAM, ON DAYS 1, 8, 15 OF EACH 35 DAY CYCLE
     Route: 041
     Dates: start: 20180214, end: 20180228
  10. LOXOPROFEN SODIUM [Concomitant]
     Active Substance: LOXOPROFEN SODIUM
     Indication: HEADACHE
     Dosage: 120 MILLIGRAM, QD
     Route: 048
     Dates: start: 20180411, end: 20180904
  11. ABRAXANE [Suspect]
     Active Substance: PACLITAXEL
     Indication: PANCREATIC CARCINOMA
     Dosage: 190 MILLIGRAM, QD ON DAYS 1, 8,,15 OF EACH 35 DAY CYCLE
     Route: 041
     Dates: start: 20180214, end: 20180228

REACTIONS (4)
  - Ventricular fibrillation [Recovered/Resolved]
  - Electrocardiogram QT prolonged [Recovering/Resolving]
  - Torsade de pointes [Recovered/Resolved]
  - Cardiac failure acute [Recovered/Resolved with Sequelae]

NARRATIVE: CASE EVENT DATE: 20180904
